FAERS Safety Report 6118108-1 (Version None)
Quarter: 2009Q1

REPORT INFORMATION
  Report Type: 
  Country: None (occurrence: None)
  Receive Date: 20090314
  Receipt Date: 20090209
  Transmission Date: 20090719
  Serious: No
  Sender: FDA-Public Use
  Company Number: US-ABBOTT-09P-163-0502797-00

PATIENT
  Sex: Male
  Weight: 65.83 kg

DRUGS (2)
  1. HUMIRA [Suspect]
     Indication: COLITIS ULCERATIVE
     Dosage: 160 MG LOADING DOSE
     Dates: start: 20090109
  2. HUMIRA [Suspect]
     Dosage: 80 MG
     Dates: start: 20090123, end: 20090123

REACTIONS (2)
  - INSOMNIA [None]
  - MIDDLE INSOMNIA [None]
